FAERS Safety Report 9113711 (Version 1)
Quarter: 2013Q1

REPORT INFORMATION
  Report Type: Spontaneous
  Country: US (occurrence: US)
  Receive Date: 20130201
  Receipt Date: 20130201
  Transmission Date: 20140127
  Serious: Yes (Other)
  Sender: FDA-Public Use
  Company Number: US-PFIZER INC-2013033651

PATIENT
  Sex: 0

DRUGS (1)
  1. VIAGRA [Suspect]
     Dosage: UNK

REACTIONS (2)
  - Sudden hearing loss [Recovering/Resolving]
  - Tinnitus [Unknown]
